FAERS Safety Report 7779232-0 (Version None)
Quarter: 2011Q3

REPORT INFORMATION
  Report Type: 
  Country: None (occurrence: None)
  Receive Date: 20110926
  Receipt Date: 20110902
  Transmission Date: 20111222
  Serious: No
  Sender: FDA-Public Use
  Company Number: US-ROXANE LABORATORIES, INC.-2011-RO-01240RO

PATIENT
  Sex: Male

DRUGS (3)
  1. ABILIFY [Concomitant]
  2. LITHIUM CARBONATE [Suspect]
     Indication: BIPOLAR DISORDER
     Dosage: 900 MG
     Route: 048
  3. LEXAPRO [Concomitant]

REACTIONS (3)
  - TOOTH EROSION [None]
  - SENSITIVITY OF TEETH [None]
  - TOOTH INJURY [None]
